FAERS Safety Report 5518945-8 (Version None)
Quarter: 2007Q4

REPORT INFORMATION
  Report Type: 
  Country: None (occurrence: None)
  Receive Date: 20071113
  Receipt Date: 20071113
  Transmission Date: 20080405
  Serious: No
  Sender: FDA-Public Use
  Company Number: None

PATIENT
  Age: 47 Year
  Sex: Female
  Weight: 87.9978 kg

DRUGS (1)
  1. PREDNISONE TAB [Suspect]
     Indication: BRONCHITIS
     Dates: start: 20071012, end: 20071024

REACTIONS (6)
  - DIARRHOEA [None]
  - DYSPEPSIA [None]
  - GASTROOESOPHAGEAL REFLUX DISEASE [None]
  - HEADACHE [None]
  - RASH PRURITIC [None]
  - VULVOVAGINAL MYCOTIC INFECTION [None]
